FAERS Safety Report 18389883 (Version 1)
Quarter: 2020Q4

REPORT INFORMATION
  Report Type: Spontaneous
  Country: US (occurrence: US)
  Receive Date: 20201015
  Receipt Date: 20201015
  Transmission Date: 20210114
  Serious: No
  Sender: FDA-Public Use
  Company Number: US-OPTINOSE US, INC-2020OPT000663

PATIENT
  Age: 50 Year
  Sex: Male

DRUGS (2)
  1. XHANCE [Suspect]
     Active Substance: FLUTICASONE PROPIONATE
     Route: 045
     Dates: start: 20200805, end: 20200819
  2. XHANCE [Suspect]
     Active Substance: FLUTICASONE PROPIONATE
     Indication: NASAL POLYPS
     Route: 045
     Dates: start: 20200723

REACTIONS (4)
  - Parosmia [Recovering/Resolving]
  - Drug ineffective [Unknown]
  - Taste disorder [Recovering/Resolving]
  - Nasal congestion [Recovering/Resolving]

NARRATIVE: CASE EVENT DATE: 202008
